FAERS Safety Report 6553882-1 (Version None)
Quarter: 2010Q1

REPORT INFORMATION
  Report Type: 
  Country: None (occurrence: None)
  Receive Date: 20100127
  Receipt Date: 20100120
  Transmission Date: 20100710
  Serious: Yes (Hospitalization)
  Sender: FDA-Public Use
  Company Number: DE-ROCHE-680611

PATIENT
  Sex: Female

DRUGS (4)
  1. TRASTUZUMAB [Suspect]
     Indication: BREAST CANCER
     Dosage: FORM: INFUSION, LAST DOSE PRIOR TO SAE: 30 DECEMBER 2009
     Route: 042
     Dates: start: 20091211
  2. EPIRUBICIN [Suspect]
     Indication: BREAST CANCER
     Dosage: LAST DOSE PRIOR TO SAE: 30 DECEMBER 2009.
     Route: 042
     Dates: start: 20091211
  3. CYCLOPHOSPHAMIDE [Suspect]
     Indication: BREAST CANCER
     Dosage: LAST DOSE PRIOR TO SAE: 30 DECEMBER 2009.
     Route: 042
     Dates: start: 20091211
  4. BISOHEXAL [Concomitant]

REACTIONS (1)
  - BRONCHITIS [None]
